FAERS Safety Report 5705822-2 (Version None)
Quarter: 2008Q2

REPORT INFORMATION
  Report Type: 
  Country: None (occurrence: None)
  Receive Date: 20080411
  Receipt Date: 20080408
  Transmission Date: 20081010
  Serious: Yes (Other)
  Sender: FDA-Public Use
  Company Number: 2007SP024157

PATIENT
  Age: 34 Year
  Sex: Male

DRUGS (2)
  1. PEG-INTRON [Suspect]
     Indication: HEPATITIS C
     Dosage: SC
     Route: 058
     Dates: start: 20070716, end: 20070914
  2. REBETOL [Suspect]
     Indication: HEPATITIS C
     Dosage: PO
     Route: 048
     Dates: start: 20070716, end: 20070914

REACTIONS (14)
  - ANXIETY [None]
  - BACK PAIN [None]
  - BLISTER [None]
  - BLOOD POTASSIUM DECREASED [None]
  - BURNING SENSATION [None]
  - DEHYDRATION [None]
  - DRY THROAT [None]
  - INJECTION SITE BRUISING [None]
  - INJECTION SITE REACTION [None]
  - INJECTION SITE SWELLING [None]
  - PAIN OF SKIN [None]
  - PARAESTHESIA [None]
  - PYREXIA [None]
  - SPEECH DISORDER [None]
